FAERS Safety Report 23564748 (Version 1)
Quarter: 2024Q1

REPORT INFORMATION
  Report Type: Spontaneous
  Country: US (occurrence: US)
  Receive Date: 20240226
  Receipt Date: 20240226
  Transmission Date: 20240410
  Serious: Yes (Other)
  Sender: FDA-Public Use
  Company Number: US-MYLANLABS-2024M1017240

PATIENT
  Age: 25 Year
  Sex: Male

DRUGS (8)
  1. ACETAMINOPHEN [Suspect]
     Active Substance: ACETAMINOPHEN
     Indication: Extremity necrosis
     Dosage: UNK
     Route: 065
  2. ACETAMINOPHEN [Suspect]
     Active Substance: ACETAMINOPHEN
     Indication: Injection site pain
  3. ACETAMINOPHEN [Suspect]
     Active Substance: ACETAMINOPHEN
     Indication: Injection site oedema
  4. ACETAMINOPHEN [Suspect]
     Active Substance: ACETAMINOPHEN
     Indication: Injection site erythema
  5. IBUPROFEN [Suspect]
     Active Substance: IBUPROFEN
     Indication: Extremity necrosis
     Dosage: UNK
     Route: 065
  6. IBUPROFEN [Suspect]
     Active Substance: IBUPROFEN
     Indication: Injection site pain
  7. IBUPROFEN [Suspect]
     Active Substance: IBUPROFEN
     Indication: Injection site oedema
  8. IBUPROFEN [Suspect]
     Active Substance: IBUPROFEN
     Indication: Injection site erythema

REACTIONS (1)
  - Drug ineffective [Unknown]
